FAERS Safety Report 12182865 (Version 1)
Quarter: 2016Q1

REPORT INFORMATION
  Report Type: Spontaneous
  Country: US (occurrence: None)
  Receive Date: 20160315
  Receipt Date: 20160315
  Transmission Date: 20160526
  Serious: No
  Sender: FDA-Public Use
  Company Number: None

PATIENT
  Age: 36 Year
  Sex: Female
  Weight: 65.77 kg

DRUGS (1)
  1. PARAGARD T 380A [Suspect]
     Active Substance: COPPER
     Dates: start: 20120502

REACTIONS (7)
  - Weight increased [None]
  - Dyspareunia [None]
  - Anxiety [None]
  - Muscle spasms [None]
  - Irritability [None]
  - Haemorrhage [None]
  - Menorrhagia [None]
